FAERS Safety Report 24377722 (Version 1)
Quarter: 2024Q3

REPORT INFORMATION
  Report Type: Spontaneous
  Country: FR (occurrence: FR)
  Receive Date: 20240930
  Receipt Date: 20240930
  Transmission Date: 20241017
  Serious: Yes (Hospitalization)
  Sender: ACCORD
  Company Number: None

PATIENT
  Age: 53 Year
  Sex: Male
  Weight: 104 kg

DRUGS (7)
  1. FUROSEMIDE [Interacting]
     Active Substance: FUROSEMIDE
     Indication: Oedema
     Dosage: 0-1-0
     Dates: start: 2024
  2. LEVOFLOXACIN [Suspect]
     Active Substance: LEVOFLOXACIN
     Indication: Staphylococcal bacteraemia
     Dosage: UNKNOWN DOSAGE
     Dates: start: 202403, end: 20240630
  3. METHADONE [Suspect]
     Active Substance: METHADONE HYDROCHLORIDE
     Indication: Drug dependence
     Dosage: 1-0-0 DECREASE DOSAGE UNTIL STOP
     Dates: start: 2022, end: 20240717
  4. ARANESP [Concomitant]
     Active Substance: DARBEPOETIN ALFA
     Indication: Anaemia
     Dosage: STRENGTH: 60 MICROGRAMS, SOLUTION FOR INJECTION IN PRE-FILLED SYRINGE
     Dates: start: 2024
  5. EUPANTOL [Concomitant]
     Active Substance: PANTOPRAZOLE SODIUM
     Indication: Gastrooesophageal reflux disease
     Dosage: 0-0-1
     Dates: start: 2024, end: 2024
  6. DUPHALAC [Concomitant]
     Active Substance: LACTULOSE
     Indication: Constipation
     Dosage: ORAL SOLUTION IN SACHET DOSE
     Dates: start: 2024, end: 2024
  7. IMOVANE [Concomitant]
     Active Substance: ZOPICLONE
     Indication: Sleep disorder
     Dosage: 0-0-1, STRENGTHS: 7.5 MG, SCORED FILM-COATED TABLET
     Dates: start: 2024

REACTIONS (1)
  - Torsade de pointes [Recovered/Resolved]

NARRATIVE: CASE EVENT DATE: 20240705
